FAERS Safety Report 9413005 (Version 1)
Quarter: 2013Q3

REPORT INFORMATION
  Report Type: Spontaneous
  Country: US (occurrence: US)
  Receive Date: 20130722
  Receipt Date: 20130722
  Transmission Date: 20140515
  Serious: No
  Sender: FDA-Public Use
  Company Number: US-009507513-1307USA009327

PATIENT
  Age: 23 Year
  Sex: Female
  Weight: 110 kg

DRUGS (4)
  1. NEXPLANON [Suspect]
     Indication: CONTRACEPTION
     Dosage: 1 ROD
     Route: 059
     Dates: start: 20120611
  2. NEXPLANON [Suspect]
     Dosage: 1 UNK, UNK
     Route: 059
     Dates: start: 20130705, end: 20130707
  3. HYDROCHLOROTHIAZIDE (+) LISINOPRIL [Concomitant]
  4. CARVEDILOL [Concomitant]

REACTIONS (2)
  - Unintended pregnancy [Recovered/Resolved]
  - Device expulsion [Recovered/Resolved]
